FAERS Safety Report 7812692-5 (Version None)
Quarter: 2011Q4

REPORT INFORMATION
  Report Type: 
  Country: None (occurrence: None)
  Receive Date: 20111013
  Receipt Date: 20110930
  Transmission Date: 20120403
  Serious: Yes (Life-Threatening, Hospitalization)
  Sender: FDA-Public Use
  Company Number: AT-ELI_LILLY_AND_COMPANY-AT201110000164

PATIENT
  Age: 57 Year
  Sex: Female

DRUGS (6)
  1. OLANZAPINE [Suspect]
     Dosage: 10 UNK
     Dates: start: 20100401, end: 20101201
  2. DEPAKENE [Concomitant]
     Dosage: 1000 MG, UNK
     Dates: start: 20080101
  3. OLANZAPINE [Suspect]
     Dosage: 2.5 UNK
     Dates: start: 20090701, end: 20100401
  4. TRESLEEN [Concomitant]
     Dosage: 100 MG, UNK
     Dates: start: 20100401
  5. TRESLEEN [Concomitant]
     Dosage: 50 MG, UNK
     Dates: start: 20090301, end: 20100401
  6. TRAZODONE HCL [Concomitant]
     Dosage: 150 MG, UNK

REACTIONS (3)
  - HOSPITALISATION [None]
  - BLOOD TRIGLYCERIDES INCREASED [None]
  - WEIGHT INCREASED [None]
